FAERS Safety Report 10350671 (Version 1)
Quarter: 2014Q3

REPORT INFORMATION
  Report Type: Spontaneous
  Country: US (occurrence: US)
  Receive Date: 20140730
  Receipt Date: 20140730
  Transmission Date: 20150326
  Serious: Yes (Hospitalization, Other)
  Sender: FDA-Public Use
  Company Number: CHPA2014US009909

PATIENT
  Age: 86 Year
  Sex: Female

DRUGS (3)
  1. VOLTAREN [Suspect]
     Active Substance: DICLOFENAC SODIUM
     Indication: ROTATOR CUFF SYNDROME
     Dosage: LESS THAN 2G, 1-3 TIMES/WEEK
     Route: 061
     Dates: start: 2011
  2. VOLTAREN [Suspect]
     Active Substance: DICLOFENAC SODIUM
     Indication: OFF LABEL USE
  3. VOLTAREN [Suspect]
     Active Substance: DICLOFENAC SODIUM
     Indication: OFF LABEL USE
     Dosage: LESS THAN 2G, 1-3 TIMES/WEEK
     Route: 061

REACTIONS (5)
  - Drug administered at inappropriate site [Unknown]
  - Haematoma [Recovering/Resolving]
  - Eye irritation [Not Recovered/Not Resolved]
  - Condition aggravated [Not Recovered/Not Resolved]
  - Therapeutic response changed [Unknown]

NARRATIVE: CASE EVENT DATE: 2011
